FAERS Safety Report 18045829 (Version 2)
Quarter: 2020Q3

REPORT INFORMATION
  Report Type: Spontaneous
  Country: US (occurrence: US)
  Receive Date: 20200720
  Receipt Date: 20200730
  Transmission Date: 20201103
  Serious: Yes (Hospitalization, Other)
  Sender: FDA-Public Use
  Company Number: US-BAUSCH-BL-2020-020055

PATIENT
  Sex: Female

DRUGS (11)
  1. KETAMINE [Suspect]
     Active Substance: KETAMINE
     Indication: SEDATIVE THERAPY
     Dosage: BOLUSES
     Route: 065
  2. HYDROMORPHONE [Suspect]
     Active Substance: HYDROMORPHONE
     Indication: ANALGESIC THERAPY
     Dosage: MAXIMUM DOSE
     Route: 065
  3. MIDAZOLAM. [Suspect]
     Active Substance: MIDAZOLAM
     Indication: SEDATIVE THERAPY
     Dosage: MAXIMUM DOSE
     Route: 065
  4. PENTOBARBITAL. [Suspect]
     Active Substance: PENTOBARBITAL
     Indication: SEDATIVE THERAPY
     Dosage: BOLUSE
     Route: 065
  5. METHADONE [Suspect]
     Active Substance: METHADONE HYDROCHLORIDE
     Indication: ANALGESIC THERAPY
     Route: 065
  6. CLONIDINE. [Concomitant]
     Active Substance: CLONIDINE
     Indication: PRODUCT USED FOR UNKNOWN INDICATION
  7. FENTANYL. [Suspect]
     Active Substance: FENTANYL
     Indication: ANALGESIC THERAPY
     Route: 065
  8. CISATRACURIUM BESILATE [Suspect]
     Active Substance: CISATRACURIUM BESYLATE
     Indication: ANALGESIC THERAPY
     Dosage: MAXIMUM DOSE
     Route: 065
  9. NALOXONE [Concomitant]
     Active Substance: NALOXONE
     Indication: PRURITUS
     Dosage: LOW?DOSE INFUSION
  10. LORAZEPAM. [Suspect]
     Active Substance: LORAZEPAM
     Indication: SEDATIVE THERAPY
     Route: 065
  11. DEXMEDETOMIDINE. [Suspect]
     Active Substance: DEXMEDETOMIDINE
     Indication: SEDATIVE THERAPY
     Dosage: MAXIMUM DOSE
     Route: 065

REACTIONS (3)
  - Tachyphylaxis [Unknown]
  - Delirium [Recovered/Resolved]
  - Pruritus [Unknown]
